FAERS Safety Report 4283780-8 (Version None)
Quarter: 2004Q1

REPORT INFORMATION
  Report Type: 
  Country: None (occurrence: None)
  Receive Date: 20040121
  Receipt Date: 20030328
  Transmission Date: 20041129
  Serious: Yes (Other)
  Sender: FDA-Public Use
  Company Number: A03200300691

PATIENT
  Age: 52 Year
  Sex: Male

DRUGS (2)
  1. PLAVIX [Suspect]
     Indication: CEREBROVASCULAR ACCIDENT
     Dosage: 75 MG QD - ORAL
     Route: 048
     Dates: start: 20030301
  2. AMLODIPINE + BENAZEPRIL HCL [Concomitant]

REACTIONS (1)
  - ANGIONEUROTIC OEDEMA [None]
